FAERS Safety Report 20861684 (Version 2)
Quarter: 2023Q1

REPORT INFORMATION
  Report Type: Report from Study
  Country: US (occurrence: US)
  Receive Date: 20220523
  Receipt Date: 20230302
  Transmission Date: 20230418
  Serious: Yes (Other)
  Sender: FDA-Public Use
  Company Number: US-SHIRE-US201809000

PATIENT
  Age: 55 Year
  Sex: Female

DRUGS (1)
  1. HUMAN IMMUNOGLOBULIN G [Suspect]
     Active Substance: HUMAN IMMUNOGLOBULIN G
     Indication: Immunodeficiency common variable
     Dosage: UNK
     Route: 065

REACTIONS (10)
  - Cellulitis [Unknown]
  - Waldenstrom^s macroglobulinaemia [Unknown]
  - Bone cancer [Unknown]
  - Fatigue [Unknown]
  - Cough [Unknown]
  - Colitis [Unknown]
  - Angiodermatitis [Unknown]
  - Upper respiratory tract infection [Unknown]
  - Hereditary angioedema [Unknown]
  - Herpes zoster [Unknown]

NARRATIVE: CASE EVENT DATE: 20180307
